FAERS Safety Report 24007909 (Version 1)
Quarter: 2024Q2

REPORT INFORMATION
  Report Type: Spontaneous
  Country: US (occurrence: US)
  Receive Date: 20240625
  Receipt Date: 20240625
  Transmission Date: 20240716
  Serious: No
  Sender: FDA-Public Use
  Company Number: US-AMGEN-USASP2024122793

PATIENT
  Sex: Female

DRUGS (2)
  1. PROCRIT [Suspect]
     Active Substance: ERYTHROPOIETIN
     Indication: Product used for unknown indication
     Dosage: 40000 UNK
     Route: 065
     Dates: start: 20220921
  2. CARVYKTI [Suspect]
     Active Substance: CILTACABTAGENE AUTOLEUCEL
     Indication: Plasma cell myeloma
     Dosage: UNK
     Route: 065
     Dates: start: 20230221, end: 20230221

REACTIONS (1)
  - Immune system disorder [Unknown]

NARRATIVE: CASE EVENT DATE: 20230101
